FAERS Safety Report 23445751 (Version 1)
Quarter: 2024Q1

REPORT INFORMATION
  Report Type: Report from Study
  Country: PT (occurrence: PT)
  Receive Date: 20240126
  Receipt Date: 20240126
  Transmission Date: 20240410
  Serious: Yes (Death)
  Sender: FDA-Public Use
  Company Number: PT-ABBVIE-5604423

PATIENT
  Age: 78 Year
  Sex: Female

DRUGS (14)
  1. CARBIDOPA\LEVODOPA [Suspect]
     Active Substance: CARBIDOPA\LEVODOPA
     Indication: Parkinson^s disease
     Dosage: 20 MG + 5 MG?FREQUENCY TEXT: MORN:20CC;MAINT:3CC/H;EXTR:1CC
     Route: 050
     Dates: start: 20220510
  2. CARBIDOPA\LEVODOPA [Suspect]
     Active Substance: CARBIDOPA\LEVODOPA
     Dosage: 20 MG + 5 MG (VIA PEG)?FREQUENCY TEXT: MA:11.5CC/H(DAY);4.9CC/H(NIGHT);EX:5.5CC
     Route: 050
     Dates: start: 20230531, end: 20240122
  3. CARBIDOPA\LEVODOPA [Suspect]
     Active Substance: CARBIDOPA\LEVODOPA
     Dosage: 20 MG + 5 MG?FREQUENCY TEXT: MA:11.5CC/H(DAY);4.9CC/H(NIGHT);EX:5.5CC
     Route: 050
     Dates: start: 2023, end: 20230531
  4. Vigantol [Concomitant]
     Indication: Product used for unknown indication
     Dosage: 5 DROP?(CHOLECALCIFEROL)?FREQUENCY TEXT: AT BREAKFAST?START DATE TEXT: BEFORE DUODOPA
  5. LORAZEPAM [Concomitant]
     Active Substance: LORAZEPAM
     Indication: Product used for unknown indication
     Dosage: 1.5 TABLET?FORM STRENGTH: 2.5MILLIGRAM?FREQUENCY TEXT: AT BEDTIME?PRODUCT (LORAZEPAM ) - START DA...
  6. PANTOPRAZOLE [Concomitant]
     Active Substance: PANTOPRAZOLE
     Indication: Product used for unknown indication
     Dosage: 1 TABLET?FORM STRENGTH: 20 MILLIGRAM?FREQUENCY TEXT: AT FASTING?BEFORE DUODOPA
  7. ALPRAZOLAM [Concomitant]
     Active Substance: ALPRAZOLAM
     Indication: Product used for unknown indication
     Dosage: 2 TABLET?FORM STRENGTH: 0.5 MILLIGRAM?FREQUENCY TEXT: AT 11AM AND 4PM?START DATE TEXT: BEFORE DUO...
  8. FUROSEMIDE [Concomitant]
     Active Substance: FUROSEMIDE
     Indication: Product used for unknown indication
     Dosage: 0.5 TABLET?FORM STRENGTH: 40 MILLIGRAM?FREQUENCY TEXT: AT BREAKFAST?START DATE TEXT: BEFORE DUODOPA
  9. FOLIC ACID [Concomitant]
     Active Substance: FOLIC ACID
     Indication: Product used for unknown indication
     Dosage: 1 TABLET?FORM STRENGTH: 5 MILLIGRAM?PRODUCT (FOLIC ACID) - FREQUENCY TEXT: AT LUNCH?BEFORE DUODOPA
  10. DOMPERIDONE [Concomitant]
     Active Substance: DOMPERIDONE
     Indication: Product used for unknown indication
     Dosage: 30 MILLILITER; AT THREE MEALS, BEFORE DUODOPA
  11. BISOPROLOL [Concomitant]
     Active Substance: BISOPROLOL\BISOPROLOL FUMARATE
     Indication: Product used for unknown indication
     Dosage: 0.5 TABLET?FORM STRENGTH: 5 MILLIGRAM?FREQUENCY TEXT: AT LUNCH?START DATE TEXT: BEFORE DUODOPA
  12. BENSERAZIDE HYDROCHLORIDE\LEVODOPA [Concomitant]
     Active Substance: BENSERAZIDE HYDROCHLORIDE\LEVODOPA
     Indication: Parkinson^s disease
     Dosage: 1 TABLET?FREQUENCY TEXT: AT BEDTIME? HBS (LEVODOPA + BENSERAZIDE)
     Dates: start: 20220617
  13. ATORVASTATIN [Concomitant]
     Active Substance: ATORVASTATIN
     Indication: Product used for unknown indication
     Dosage: 1 TABLET?FORM STRENGTH: 20 MILLIGRAM?FREQUENCY TEXT: AT DINNER?START DATE TEXT: BEFORE DUODOPA
  14. SEROQUEL [Concomitant]
     Active Substance: QUETIAPINE FUMARATE
     Indication: Product used for unknown indication
     Dosage: 1 TABLET?SR 50 (QUETIAPINE)?FREQUENCY TEXT: AT DINNER?START DATE TEXT: BEFORE DUODOPA

REACTIONS (1)
  - Respiratory tract infection [Fatal]

NARRATIVE: CASE EVENT DATE: 20240122
